FAERS Safety Report 5871265-4 (Version None)
Quarter: 2008Q3

REPORT INFORMATION
  Report Type: 
  Country: None (occurrence: None)
  Receive Date: 20080903
  Receipt Date: 20080903
  Transmission Date: 20090109
  Serious: No
  Sender: FDA-Public Use
  Company Number: None

PATIENT
  Sex: Male

DRUGS (2)
  1. RITALIN [Suspect]
  2. DEXMETHYLPHENIDATE HCL [Suspect]

REACTIONS (3)
  - ANXIETY [None]
  - CHEST PAIN [None]
  - DRUG INTOLERANCE [None]
